FAERS Safety Report 7457331-0 (Version None)
Quarter: 2011Q2

REPORT INFORMATION
  Report Type: 
  Country: None (occurrence: None)
  Receive Date: 20110504
  Receipt Date: 20100805
  Transmission Date: 20111010
  Serious: No
  Sender: FDA-Public Use
  Company Number: US-KINGPHARMUSA00001-K201001003

PATIENT
  Age: 56 Year
  Sex: Female
  Weight: 81.633 kg

DRUGS (2)
  1. AVINZA [Suspect]
     Indication: PAIN
  2. AVINZA [Suspect]
     Indication: FIBROMYALGIA
     Dosage: 120 MG, QAM
     Route: 048
     Dates: start: 20090101

REACTIONS (2)
  - DRUG TOLERANCE [None]
  - DRUG INEFFECTIVE [None]
